FAERS Safety Report 22943616 (Version 3)
Quarter: 2023Q4

REPORT INFORMATION
  Report Type: Report from Study
  Country: US (occurrence: US)
  Receive Date: 20230914
  Receipt Date: 20231026
  Transmission Date: 20240110
  Serious: Yes (Hospitalization)
  Sender: FDA-Public Use
  Company Number: US-PFIZER INC-PV202300154861

PATIENT
  Age: 16 Year
  Sex: Male
  Weight: 63.6 kg

DRUGS (5)
  1. VINCRISTINE SULFATE [Suspect]
     Active Substance: VINCRISTINE SULFATE
     Indication: Leukaemia
     Dosage: 2 MG, ONCE
     Route: 042
     Dates: start: 20220504
  2. RUXOLITINIB [Suspect]
     Active Substance: RUXOLITINIB
     Indication: Leukaemia
     Dosage: 85 MG, 1X/DAY (TABLET)
     Route: 048
     Dates: start: 20220616
  3. METHOTREXATE [Suspect]
     Active Substance: METHOTREXATE
     Indication: Leukaemia
     Dosage: 32.5 MG, ONCE (TABLET)
     Route: 048
     Dates: start: 20220606
  4. PREDNISONE [Suspect]
     Active Substance: PREDNISONE
     Indication: Leukaemia
     Dosage: 35 MG,ONCE (TABLET)
     Route: 048
     Dates: start: 20220616
  5. MERCAPTOPURINE [Suspect]
     Active Substance: MERCAPTOPURINE
     Indication: Leukaemia
     Dosage: 125 MG, 1X/DAY, TABLET
     Route: 048
     Dates: start: 20220616

REACTIONS (7)
  - Perineal pain [Recovered/Resolved]
  - Anorectal infection [Recovered/Resolved]
  - Febrile neutropenia [Recovered/Resolved]
  - Neutropenia [Recovered/Resolved]
  - Anaemia [Recovered/Resolved]
  - Thrombocytopenia [Recovered/Resolved]
  - Anaemia [Recovered/Resolved]

NARRATIVE: CASE EVENT DATE: 20230714
